FAERS Safety Report 7513886-9 (Version None)
Quarter: 2011Q2

REPORT INFORMATION
  Report Type: 
  Country: None (occurrence: None)
  Receive Date: 20110531
  Receipt Date: 20110517
  Transmission Date: 20111010
  Serious: Yes (Hospitalization, Other)
  Sender: FDA-Public Use
  Company Number: PHHY2011US38295

PATIENT
  Sex: Female
  Weight: 81.19 kg

DRUGS (8)
  1. LISINOPRIL [Concomitant]
     Indication: HYPERTENSION
     Dosage: 10 MG, DAILY
     Route: 048
  2. SOL MEDROL [Concomitant]
     Dosage: UNK
  3. DUREZOL [Concomitant]
     Dosage: UNK
  4. NEXIUM [Concomitant]
     Indication: GASTROOESOPHAGEAL REFLUX DISEASE
     Dosage: 40 MG,  DAILY
     Route: 048
  5. ASPIRIN [Concomitant]
     Indication: CARDIAC DISORDER
     Dosage: 81 MG, DAILY
     Route: 048
  6. ANTIHYPERTENSIVE DRUGS [Concomitant]
     Dosage: UNK
  7. FEXOFENADINE [Concomitant]
     Indication: HYPERSENSITIVITY
     Dosage: 180 MG DAILY
     Route: 048
  8. RECLAST [Suspect]
     Indication: OSTEOPOROSIS
     Dosage: 5 MG/100 ML
     Route: 042
     Dates: start: 20110419, end: 20110419

REACTIONS (8)
  - HEADACHE [None]
  - ARTHRALGIA [None]
  - LACRIMATION INCREASED [None]
  - EYE SWELLING [None]
  - OCULAR HYPERAEMIA [None]
  - EPISCLERITIS [None]
  - FOREIGN BODY SENSATION IN EYES [None]
  - CONJUNCTIVAL HYPERAEMIA [None]
